FAERS Safety Report 7028749-5 (Version None)
Quarter: 2010Q4

REPORT INFORMATION
  Report Type: 
  Country: None (occurrence: None)
  Receive Date: 20101004
  Receipt Date: 20101004
  Transmission Date: 20110411
  Serious: No
  Sender: FDA-Public Use
  Company Number: None

PATIENT
  Age: 95 Year
  Sex: Female
  Weight: 78 kg

DRUGS (8)
  1. MEGACE [Suspect]
     Indication: CACHEXIA
     Dosage: 400MG DAILY PO,  A FEW YEARS
     Route: 048
  2. REMERON [Concomitant]
  3. MACROBID [Concomitant]
  4. ACIDOPHILUS [Concomitant]
  5. ARICEPT [Concomitant]
  6. TYLENOL [Concomitant]
  7. ARIXTRA [Concomitant]
  8. HYDROCHLOROTHIAZIDE [Concomitant]

REACTIONS (2)
  - DEEP VEIN THROMBOSIS [None]
  - PULMONARY EMBOLISM [None]
